FAERS Safety Report 4800677-2 (Version None)
Quarter: 2005Q3

REPORT INFORMATION
  Report Type: 
  Country: None (occurrence: None)
  Receive Date: 20050929
  Receipt Date: 20050812
  Transmission Date: 20060218
  Serious: No
  Sender: FDA-Public Use
  Company Number: 05P-163-0308198-00

PATIENT
  Age: 71 Year

DRUGS (3)
  1. HUMIRA [Suspect]
     Indication: RHEUMATOID ARTHRITIS
     Dosage: 40 MG, 1 IN 10 D, SUBCUTANEOUS
     Route: 058
     Dates: start: 20040101
  2. BLOOD PRESSURE PILL [Concomitant]
  3. DIABETES PILL [Concomitant]

REACTIONS (1)
  - FALL [None]
